FAERS Safety Report 11623966 (Version 2)
Quarter: 2015Q4

REPORT INFORMATION
  Report Type: Spontaneous
  Country: US (occurrence: US)
  Receive Date: 20151013
  Receipt Date: 20151120
  Transmission Date: 20160304
  Serious: No
  Sender: FDA-Public Use
  Company Number: US-JNJFOC-20150923887

PATIENT
  Age: 43 Year
  Sex: Female
  Weight: 61.24 kg

DRUGS (3)
  1. RETIN-A [Concomitant]
     Active Substance: TRETINOIN
     Indication: SKIN DISORDER
     Route: 065
  2. MENS ROGAINE EXTRA STRENGTH [Suspect]
     Active Substance: MINOXIDIL
     Route: 061
  3. MENS ROGAINE EXTRA STRENGTH [Suspect]
     Active Substance: MINOXIDIL
     Indication: ALOPECIA
     Dosage: AT NIGHT
     Route: 061

REACTIONS (4)
  - Product formulation issue [Unknown]
  - Drug administered at inappropriate site [Unknown]
  - Wrong patient received medication [Not Recovered/Not Resolved]
  - Alopecia [Not Recovered/Not Resolved]
